FAERS Safety Report 9863146 (Version 2)
Quarter: 2014Q1

REPORT INFORMATION
  Report Type: Report from Study
  Country: CA (occurrence: CA)
  Receive Date: 20140203
  Receipt Date: 20140327
  Transmission Date: 20141002
  Serious: Yes (Other)
  Sender: FDA-Public Use
  Company Number: CA-JNJFOC-20140118019

PATIENT
  Sex: Female
  Weight: 45 kg

DRUGS (1)
  1. REMICADE [Suspect]
     Indication: CROHN^S DISEASE
     Route: 042
     Dates: start: 20130814

REACTIONS (4)
  - Anal fissure [Unknown]
  - Anal fistula [Unknown]
  - Infusion related reaction [Unknown]
  - Throat tightness [Unknown]
